FAERS Safety Report 18595173 (Version 1)
Quarter: 2020Q4

REPORT INFORMATION
  Report Type: Spontaneous
  Country: US (occurrence: US)
  Receive Date: 20201209
  Receipt Date: 20201209
  Transmission Date: 20210114
  Serious: No
  Sender: FDA-Public Use
  Company Number: US-GLAXOSMITHKLINE-US2020AMR237551

PATIENT
  Sex: Female

DRUGS (1)
  1. ZEJULA [Suspect]
     Active Substance: NIRAPARIB
     Indication: OVARIAN CANCER
     Dosage: 300 MG, QD
     Route: 065
     Dates: start: 20201114

REACTIONS (7)
  - Palpitations [Unknown]
  - Blood pressure increased [Unknown]
  - Feeling abnormal [Unknown]
  - Nausea [Unknown]
  - Blood cholesterol increased [Unknown]
  - Illness [Unknown]
  - Fatigue [Unknown]
